FAERS Safety Report 4307760-9 (Version None)
Quarter: 2004Q1

REPORT INFORMATION
  Report Type: 
  Country: None (occurrence: None)
  Receive Date: 20040225
  Receipt Date: 20030217
  Transmission Date: 20041129
  Serious: Yes (Disabling)
  Sender: FDA-Public Use
  Company Number: WAES 0302USA01740

PATIENT
  Age: 59 Year
  Sex: Female

DRUGS (3)
  1. ZOCOR [Suspect]
     Indication: HYPERLIPIDAEMIA
     Dosage: PO
     Route: 048
  2. HYDRODIURIL [Concomitant]
  3. PRINIVIL [Concomitant]

REACTIONS (1)
  - MYALGIA [None]
